FAERS Safety Report 24114634 (Version 2)
Quarter: 2024Q3

REPORT INFORMATION
  Report Type: Spontaneous
  Country: US (occurrence: None)
  Receive Date: 20240721
  Receipt Date: 20240909
  Transmission Date: 20241017
  Serious: No
  Sender: ASTRAZENECA
  Company Number: 2024A162689

PATIENT
  Sex: Female

DRUGS (1)
  1. SYMBICORT [Suspect]
     Active Substance: BUDESONIDE\FORMOTEROL FUMARATE DIHYDRATE
     Dosage: 160, UNKNOWN UNKNOWN
     Route: 055

REACTIONS (3)
  - Chest discomfort [Unknown]
  - Drug delivery system malfunction [Not Recovered/Not Resolved]
  - Product use issue [Unknown]
